FAERS Safety Report 5795231-2 (Version None)
Quarter: 2008Q2

REPORT INFORMATION
  Report Type: 
  Country: None (occurrence: None)
  Receive Date: 20080625
  Receipt Date: 20080609
  Transmission Date: 20081010
  Serious: Yes (Hospitalization)
  Sender: FDA-Public Use
  Company Number: 2008EU001002

PATIENT
  Age: 61 Year
  Sex: Male

DRUGS (2)
  1. PROTOPIC [Suspect]
     Indication: DERMATITIS ATOPIC
     Dosage: 1 DF, BID, TOPICAL : 1 DF,UID/QD, TOPICAL
     Route: 061
     Dates: start: 20080207, end: 20080220
  2. PROTOPIC [Suspect]
     Indication: DERMATITIS ATOPIC
     Dosage: 1 DF, BID, TOPICAL : 1 DF,UID/QD, TOPICAL
     Route: 061
     Dates: start: 20080221, end: 20080304

REACTIONS (3)
  - ARTERITIS [None]
  - DIABETES MELLITUS [None]
  - LEG AMPUTATION [None]
